FAERS Safety Report 17321303 (Version 1)
Quarter: 2020Q1

REPORT INFORMATION
  Report Type: Other
  Country: US (occurrence: US)
  Receive Date: 20200126
  Receipt Date: 20200126
  Transmission Date: 20200409
  Serious: No
  Sender: FDA-Public Use
  Company Number: US-ACORDA-ACO_158320_2019

PATIENT
  Sex: Male

DRUGS (3)
  1. NUVIGIL [Concomitant]
     Active Substance: ARMODAFINIL
     Indication: PRODUCT USED FOR UNKNOWN INDICATION
     Dosage: UNK
     Route: 065
  2. AMPYRA [Suspect]
     Active Substance: DALFAMPRIDINE
     Indication: MULTIPLE SCLEROSIS
     Dosage: 10 MILLIGRAM, Q 12 HRS
     Route: 065
     Dates: start: 20180223
  3. AMPYRA [Suspect]
     Active Substance: DALFAMPRIDINE
     Dosage: 10 MILLIGRAM, Q 12 HRS
     Route: 065

REACTIONS (9)
  - Fatigue [Unknown]
  - Fall [Recovered/Resolved]
  - Hypokinesia [Recovered/Resolved]
  - Nausea [Recovered/Resolved]
  - Loss of personal independence in daily activities [Unknown]
  - Therapy cessation [Unknown]
  - Malaise [Recovered/Resolved]
  - Head discomfort [Recovered/Resolved]
  - Withdrawal syndrome [Recovered/Resolved]
